FAERS Safety Report 5060677-7 (Version None)
Quarter: 2006Q3

REPORT INFORMATION
  Report Type: 
  Country: None (occurrence: None)
  Receive Date: 20060719
  Receipt Date: 20060719
  Transmission Date: 20061208
  Serious: Yes (Hospitalization, Other)
  Sender: FDA-Public Use
  Company Number: None

PATIENT
  Age: 15 Year
  Sex: Male
  Weight: 58.9676 kg

DRUGS (2)
  1. DEXALONE 30 MG DEXAMETHOROPHAN XANODYNE PHARMACAL INC [Suspect]
     Indication: DRUG ABUSER
     Dosage: 750 MG -25 GEL CAPS-  1 TIME PO
     Route: 048
     Dates: start: 20060609, end: 20060609
  2. DEXALONE 30 MG DEXAMETHOROPHAN XANODYNE PHARMACAL INC [Suspect]
     Indication: INTENTIONAL DRUG MISUSE
     Dosage: 750 MG -25 GEL CAPS-  1 TIME PO
     Route: 048
     Dates: start: 20060609, end: 20060609

REACTIONS (4)
  - DEPRESSED LEVEL OF CONSCIOUSNESS [None]
  - HALLUCINATION [None]
  - INCORRECT DOSE ADMINISTERED [None]
  - INTENTIONAL DRUG MISUSE [None]
